FAERS Safety Report 4372628-9 (Version None)
Quarter: 2004Q2

REPORT INFORMATION
  Report Type: 
  Country: None (occurrence: None)
  Receive Date: 20040526
  Receipt Date: 20040518
  Transmission Date: 20050107
  Serious: Yes (Hospitalization)
  Sender: FDA-Public Use
  Company Number: US-SHR-04-019783

PATIENT
  Age: 47 Year
  Sex: Female
  Weight: 56.7 kg

DRUGS (7)
  1. BETASERON [Suspect]
     Indication: MULTIPLE SCLEROSIS
     Dosage: 8 MIU, EVERY 2D, SUBCUTANEOUS
     Route: 058
     Dates: start: 19980101
  2. INSULIN [Concomitant]
  3. PROVIGIL [Concomitant]
  4. PROZAC [Concomitant]
  5. ZANAFLEX [Concomitant]
  6. VALIUM /NET/(DIAZEPAM) [Concomitant]
  7. SOLU-MEDROL /USA/(METHYLPRDNISOLONE SODIUM SUCCINATE) [Concomitant]

REACTIONS (5)
  - ARTHROPATHY [None]
  - IMPAIRED HEALING [None]
  - LEG CRUSHING [None]
  - POSTOPERATIVE INFECTION [None]
  - ROAD TRAFFIC ACCIDENT [None]
